FAERS Safety Report 8990505 (Version 1)
Quarter: 2012Q4

REPORT INFORMATION
  Report Type: Report from Study
  Country: CA (occurrence: CA)
  Receive Date: 20121228
  Receipt Date: 20121228
  Transmission Date: 20130627
  Serious: Yes (Other)
  Sender: FDA-Public Use
  Company Number: CA-ROCHE-1169069

PATIENT
  Sex: Female
  Weight: 73 kg

DRUGS (15)
  1. XOLAIR [Suspect]
     Indication: ASTHMA
     Route: 058
     Dates: start: 20060712
  2. PLAQUENIL [Concomitant]
     Route: 065
  3. NEXIUM [Concomitant]
  4. CELEXA [Concomitant]
  5. CALCIUM [Concomitant]
  6. VITAMIN D [Concomitant]
  7. BUDESONIDE [Concomitant]
  8. PREMARIN [Concomitant]
  9. IMOVANE [Concomitant]
  10. ZOMIG [Concomitant]
  11. REACTINE (CANADA) [Concomitant]
  12. PENNSAID [Concomitant]
  13. DIPROLENE [Concomitant]
  14. HYCODAN [Concomitant]
  15. SYMBICORT [Concomitant]

REACTIONS (16)
  - Purpura senile [Unknown]
  - Hypersensitivity [Unknown]
  - Throat irritation [Unknown]
  - Lacrimation increased [Unknown]
  - Cough [Unknown]
  - Eye pruritus [Unknown]
  - Ecchymosis [Unknown]
  - Skin lesion [Unknown]
  - Nasopharyngitis [Unknown]
  - Contusion [Unknown]
  - Productive cough [Unknown]
  - Stress [Unknown]
  - Increased upper airway secretion [Unknown]
  - Sinusitis [Unknown]
  - Rhonchi [Unknown]
  - Fatigue [Unknown]
